FAERS Safety Report 9365711 (Version 2)
Quarter: 2013Q3

REPORT INFORMATION
  Report Type: Spontaneous
  Country: US (occurrence: US)
  Receive Date: 20130625
  Receipt Date: 20130729
  Transmission Date: 20140515
  Serious: No
  Sender: FDA-Public Use
  Company Number: US-009507513-1306USA008552

PATIENT
  Sex: Male

DRUGS (1)
  1. COSOPT PF [Suspect]
     Dosage: 1 DF, BID
     Route: 047
     Dates: start: 201303

REACTIONS (3)
  - Accidental exposure to product [Unknown]
  - Product packaging issue [Unknown]
  - No adverse event [Unknown]
